FAERS Safety Report 9477433 (Version 2)
Quarter: 2014Q2

REPORT INFORMATION
  Report Type: Spontaneous
  Country: IT (occurrence: IT)
  Receive Date: 20130826
  Receipt Date: 20140403
  Transmission Date: 20141212
  Serious: Yes (Other)
  Sender: FDA-Public Use
  Company Number: IT-UCBSA-095827

PATIENT
  Age: 45 Year
  Sex: Male

DRUGS (1)
  1. CIMZIA [Suspect]
     Indication: RHEUMATOID ARTHRITIS
     Dosage: FREQUENCY: TOTAL; 200 MG SOLUTION FOR INJECTION, TWO PRE FILLED 1 ML SYRINGES
     Route: 058
     Dates: start: 20130617, end: 20130617

REACTIONS (3)
  - Rash generalised [Recovering/Resolving]
  - Dyspnoea [Recovering/Resolving]
  - Chest discomfort [Recovering/Resolving]
